FAERS Safety Report 16538764 (Version 2)
Quarter: 2019Q3

REPORT INFORMATION
  Report Type: Spontaneous
  Country: US (occurrence: US)
  Receive Date: 20190708
  Receipt Date: 20190722
  Transmission Date: 20191004
  Serious: No
  Sender: FDA-Public Use
  Company Number: US-DRREDDYS-USA/USA/19/0111452

PATIENT
  Age: 52 Year
  Sex: Female

DRUGS (9)
  1. LEVODOPA [Concomitant]
     Active Substance: LEVODOPA
     Indication: PARKINSONISM
     Dosage: MUCH GREATER FREQUENCY
  2. CLONAZEPAM. [Concomitant]
     Active Substance: CLONAZEPAM
     Indication: PRODUCT USED FOR UNKNOWN INDICATION
     Dosage: AT BEDTIME
  3. CARBIDOPA 25 MG, LEVODOPA 100 MG [Concomitant]
     Active Substance: CARBIDOPA\LEVODOPA
     Dosage: TWO CARBIDOPA/ LEVODOPA PER DAY
     Route: 048
  4. LEVODOPA [Concomitant]
     Active Substance: LEVODOPA
  5. CARBIDOPA 25 MG, LEVODOPA 100 MG [Concomitant]
     Active Substance: CARBIDOPA\LEVODOPA
     Dosage: INCREASED DOSES OF CARBIDOPA/LEVODOPA, NOW 7-10 TABLETS DAILY
     Route: 048
  6. LEVODOPA [Concomitant]
     Active Substance: LEVODOPA
  7. QUETIAPINE FUMARATE TABLETS [Suspect]
     Active Substance: QUETIAPINE FUMARATE
     Indication: PSYCHOTIC DISORDER
     Route: 065
  8. CARBIDOPA 25 MG, LEVODOPA 100 MG [Concomitant]
     Active Substance: CARBIDOPA\LEVODOPA
     Indication: PARKINSONISM
     Dosage: CARBIDOPA/LEVODOPA 25/100, 3 TABLETS DAILY
     Route: 048
  9. ESCITALOPRAM [Concomitant]
     Active Substance: ESCITALOPRAM OXALATE
     Indication: ANXIETY

REACTIONS (2)
  - Drug ineffective [Unknown]
  - Somnolence [Recovered/Resolved]
